FAERS Safety Report 9005308 (Version 3)
Quarter: 2013Q2

REPORT INFORMATION
  Report Type: Spontaneous
  Country: JP (occurrence: JP)
  Receive Date: 20130108
  Receipt Date: 20130403
  Transmission Date: 20140414
  Serious: Yes (Disabling, Other)
  Sender: FDA-Public Use
  Company Number: JP-ELI_LILLY_AND_COMPANY-JP201209005640

PATIENT
  Age: 64 Year
  Sex: Female
  Weight: 68 kg

DRUGS (11)
  1. CYMBALTA [Suspect]
     Indication: DEPRESSION
     Dosage: 60 MG, EACH MORNING
     Route: 048
     Dates: start: 2010, end: 20120825
  2. GABAPEN [Concomitant]
     Dosage: 400 MG, TID
     Route: 048
  3. HALCION [Concomitant]
     Dosage: 0.125 MG, EACH EVENING
     Route: 048
  4. LEXOTAN [Concomitant]
     Dosage: 1 MG, TID
     Route: 048
  5. TRYPTANOL [Concomitant]
     Dosage: 50 MG, EACH EVENING
     Route: 048
  6. SEROQUEL [Concomitant]
     Dosage: 600 MG, EACH EVENING
     Route: 048
  7. RIVOTRIL [Concomitant]
     Dosage: 1 MG, EACH EVENING
     Route: 048
  8. ROHYPNOL [Concomitant]
     Dosage: 2 MG, EACH EVENING
     Route: 048
  9. LANSOPRAZOLE [Concomitant]
     Dosage: 15 MG, EACH MORNING
     Route: 048
  10. MAGNESIUM OXIDE [Concomitant]
     Dosage: 1 G, BID
  11. PURSENNID [Concomitant]
     Dosage: 72 MG, EACH EVENING
     Route: 048

REACTIONS (1)
  - Rhabdomyolysis [Recovering/Resolving]
